FAERS Safety Report 5179889-7 (Version None)
Quarter: 2006Q4

REPORT INFORMATION
  Report Type: 
  Country: None (occurrence: None)
  Receive Date: 20061212
  Receipt Date: 20061129
  Transmission Date: 20070319
  Serious: Yes (Hospitalization, Other)
  Sender: FDA-Public Use
  Company Number: 2006148115

PATIENT
  Age: 72 Year
  Sex: Female

DRUGS (1)
  1. FLUCAM (AMPIROXICAM) [Suspect]
     Indication: OSTEOARTHRITIS
     Dosage: ORAL
     Route: 048
     Dates: end: 20060101

REACTIONS (6)
  - COLITIS ULCERATIVE [None]
  - DISEASE PROGRESSION [None]
  - ENTEROCOLITIS [None]
  - HYPOCHROMIC ANAEMIA [None]
  - MELAENA [None]
  - PSEUDOPOLYP [None]
